FAERS Safety Report 5105824-3 (Version None)
Quarter: 2006Q3

REPORT INFORMATION
  Report Type: 
  Country: None (occurrence: None)
  Receive Date: 20060912
  Receipt Date: 20060906
  Transmission Date: 20061208
  Serious: Yes (Death, Hospitalization)
  Sender: FDA-Public Use
  Company Number: CLOF-10311

PATIENT
  Age: 59 Year
  Sex: Female
  Weight: 65 kg

DRUGS (24)
  1. CLOFARABINE [Suspect]
     Indication: ACUTE LEUKAEMIA
     Dosage: 17 MG DAILY
     Dates: start: 20060727, end: 20060729
  2. CLOFARABINE [Suspect]
     Indication: ACUTE LEUKAEMIA
     Dosage: 17 MG DAILY
     Dates: start: 20060803, end: 20060805
  3. CYCLOPHOSPHAMIDE [Suspect]
     Indication: ACUTE LEUKAEMIA
     Dosage: 350 MG DAILY
     Dates: start: 20060726, end: 20060727
  4. CYCLOPHOSPHAMIDE [Suspect]
     Indication: ACUTE LEUKAEMIA
     Dosage: 1400 MG DAILY
     Dates: start: 20060728, end: 20060728
  5. CYCLOPHOSPHAMIDE [Suspect]
     Indication: ACUTE LEUKAEMIA
     Dosage: 700 MG DAILY
     Dates: start: 20060729, end: 20060729
  6. CYCLOPHOSPHAMIDE [Suspect]
     Indication: ACUTE LEUKAEMIA
     Dosage: 700 MG DAILY
     Dates: start: 20060803, end: 20060805
  7. ACETAMINOPHEN [Concomitant]
  8. ALLOPURINOL [Concomitant]
  9. HYDROCORTISONE [Concomitant]
  10. CASPOFUNGIN [Concomitant]
  11. CO-TRIMOXAZOLE [Concomitant]
  12. MEROPENEM [Concomitant]
  13. METRONIDAZOLE [Concomitant]
  14. NORFLOXACIN [Concomitant]
  15. VALA [Concomitant]
  16. BENADRYL [Concomitant]
  17. FEXOFEN [Concomitant]
  18. GABAPENTIN [Concomitant]
  19. MONTELUKAST [Concomitant]
  20. PANTOPRAZOLE SODIUM [Concomitant]
  21. PROZAC [Concomitant]
  22. TOPIRAMATE [Concomitant]
  23. ACETAMINOPHEN [Concomitant]
  24. ZIPRASIDONE HCL [Concomitant]

REACTIONS (7)
  - DRUG RESISTANCE [None]
  - ENTEROCOCCAL BACTERAEMIA [None]
  - HAEMODIALYSIS [None]
  - HYPOTENSION [None]
  - RENAL DISORDER [None]
  - RENAL FAILURE [None]
  - SEPSIS [None]
